FAERS Safety Report 5610845-8 (Version None)
Quarter: 2008Q1

REPORT INFORMATION
  Report Type: 
  Country: None (occurrence: None)
  Receive Date: 20080201
  Receipt Date: 20080118
  Transmission Date: 20080703
  Serious: Yes (Other)
  Sender: FDA-Public Use
  Company Number: SE-AMGEN-US111664

PATIENT
  Sex: Female

DRUGS (1)
  1. ENBREL [Suspect]
     Indication: RHEUMATOID ARTHRITIS
     Dosage: UNKNOWN
     Dates: start: 19991104

REACTIONS (3)
  - LUNG INFILTRATION [None]
  - MYOCARDIAL INFARCTION [None]
  - WEIGHT DECREASED [None]
